FAERS Safety Report 11783689 (Version 1)
Quarter: 2015Q4

REPORT INFORMATION
  Report Type: Other
  Country: ES (occurrence: ES)
  Receive Date: 20151127
  Receipt Date: 20151127
  Transmission Date: 20160305
  Serious: Yes (Other)
  Sender: FDA-Public Use
  Company Number: ES-CONCORDIA PHARMACEUTICALS INC.-CO-PL-ES-2015-385

PATIENT
  Age: 36 Year
  Sex: Female

DRUGS (2)
  1. HYDROXYCHLOROQUINE SULFATE. [Suspect]
     Active Substance: HYDROXYCHLOROQUINE SULFATE
     Indication: POLYMORPHIC LIGHT ERUPTION
     Route: 065
     Dates: start: 2010
  2. AZATHIOPRINE. [Concomitant]
     Active Substance: AZATHIOPRINE

REACTIONS (13)
  - Dyspnoea exertional [None]
  - Cough [None]
  - Bronchoalveolar lavage abnormal [None]
  - Vision blurred [Recovered/Resolved]
  - PO2 decreased [None]
  - PCO2 decreased [None]
  - Interstitial lung disease [Recovered/Resolved]
  - Malaise [None]
  - Diarrhoea [Recovered/Resolved]
  - Chest X-ray abnormal [None]
  - Blood bicarbonate increased [None]
  - Irritability [None]
  - Rales [None]

NARRATIVE: CASE EVENT DATE: 2010
